FAERS Safety Report 5084378-4 (Version None)
Quarter: 2006Q3

REPORT INFORMATION
  Report Type: 
  Country: None (occurrence: None)
  Receive Date: 20060816
  Receipt Date: 20060802
  Transmission Date: 20061208
  Serious: Yes (Other)
  Sender: FDA-Public Use
  Company Number: TRP_0841_2006

PATIENT
  Sex: Male

DRUGS (2)
  1. RIBASPHERE [Suspect]
     Indication: HEPATITIS C
     Dosage: 800 MG QDAY PO
     Route: 048
  2. PEGASYS [Suspect]
     Indication: HEPATITIS C
     Dosage: DF UNK SC
     Route: 058

REACTIONS (3)
  - ALANINE AMINOTRANSFERASE INCREASED [None]
  - ASPARTATE AMINOTRANSFERASE INCREASED [None]
  - CONDITION AGGRAVATED [None]
